FAERS Safety Report 8852274 (Version 1)
Quarter: 2012Q4

REPORT INFORMATION
  Report Type: Spontaneous
  Country: PT (occurrence: None)
  Receive Date: 20121017
  Receipt Date: 20121017
  Transmission Date: 20130627
  Serious: Yes (Other)
  Sender: FDA-Public Use
  Company Number: AUR-APL-2012-04390

PATIENT
  Age: 53 Year
  Sex: Female

DRUGS (1)
  1. ZOLPIDEM [Suspect]
     Indication: INSOMNIA

REACTIONS (5)
  - Amnesia [None]
  - Fatigue [None]
  - Nausea [None]
  - Decreased appetite [None]
  - Weight increased [None]
